FAERS Safety Report 5237545-0 (Version None)
Quarter: 2007Q1

REPORT INFORMATION
  Report Type: 
  Country: None (occurrence: None)
  Receive Date: 20070213
  Receipt Date: 20070205
  Transmission Date: 20070707
  Serious: Yes (Hospitalization)
  Sender: FDA-Public Use
  Company Number: US-ELI_LILLY_AND_COMPANY-US200702001423

PATIENT
  Age: 45 Year
  Sex: Male

DRUGS (2)
  1. CIALIS [Suspect]
     Dosage: UNK, UNKNOWN
  2. VIAGRA [Concomitant]
     Dosage: UNK, UNKNOWN

REACTIONS (2)
  - CARDIAC DISORDER [None]
  - CARDIAC FAILURE [None]
